FAERS Safety Report 8381861-0 (Version None)
Quarter: 2012Q2

REPORT INFORMATION
  Report Type: 
  Country: None (occurrence: None)
  Receive Date: 20120522
  Receipt Date: 20120522
  Transmission Date: 20120825
  Serious: Yes (Other)
  Sender: FDA-Public Use
  Company Number: None

PATIENT
  Age: 66 Year
  Sex: Female
  Weight: 86.1834 kg

DRUGS (1)
  1. LISINOPRIL AND HYDROCHLOROTHIAZIDE [Suspect]
     Indication: HYPERTENSION
     Dosage: ONE TAB DAILY PO
     Route: 048
     Dates: start: 20090212, end: 20120404

REACTIONS (9)
  - ABDOMINAL DISTENSION [None]
  - FATIGUE [None]
  - HYPERHIDROSIS [None]
  - DYSPNOEA [None]
  - HYPOAESTHESIA [None]
  - MUSCLE SPASMS [None]
  - BLOOD GLUCOSE INCREASED [None]
  - COUGH [None]
  - ARTHRALGIA [None]
